FAERS Safety Report 6738111-8 (Version None)
Quarter: 2010Q2

REPORT INFORMATION
  Report Type: 
  Country: None (occurrence: None)
  Receive Date: 20100520
  Receipt Date: 20100510
  Transmission Date: 20101027
  Serious: Yes (Other)
  Sender: FDA-Public Use
  Company Number: AXC-2010-000136

PATIENT
  Sex: Female

DRUGS (2)
  1. CARAFATE [Suspect]
     Indication: DIARRHOEA
     Dosage: ORAL
     Route: 048
     Dates: start: 20100401, end: 20100401
  2. CARAFATE [Suspect]
     Indication: MOUTH ULCERATION
     Dosage: ORAL
     Route: 048
     Dates: start: 20100401, end: 20100401

REACTIONS (3)
  - ABDOMINAL DISCOMFORT [None]
  - CLOSTRIDIAL INFECTION [None]
  - NAUSEA [None]
